FAERS Safety Report 7313951-5 (Version None)
Quarter: 2011Q1

REPORT INFORMATION
  Report Type: 
  Country: None (occurrence: None)
  Receive Date: 20110225
  Receipt Date: 20110211
  Transmission Date: 20110831
  Serious: Yes (Hospitalization)
  Sender: FDA-Public Use
  Company Number: PHHY2010US77766

PATIENT
  Sex: Female

DRUGS (10)
  1. ATENOLOL [Concomitant]
     Dosage: 25 MG, QD
     Route: 048
  2. ZEMPLAR [Concomitant]
     Dosage: 1 UG, QD
     Route: 048
  3. DIOVAN [Concomitant]
     Dosage: 80 MG, QD
     Route: 048
  4. LOVASTATIN [Concomitant]
     Dosage: 10 MG, QD
     Route: 048
  5. GABAPENTIN [Concomitant]
     Dosage: 10 MG, QD
     Route: 048
  6. OMEPRAZOLE [Concomitant]
  7. GLEEVEC [Suspect]
     Dosage: 400 MG, UNK
  8. DYAZIDE [Concomitant]
  9. LEVOTHYROXINE [Concomitant]
     Dosage: 25 UG, QD
     Route: 048
  10. LASIX [Concomitant]
     Dosage: 40 MG, QD
     Route: 048

REACTIONS (9)
  - CONVULSION [None]
  - SYNCOPE [None]
  - MENTAL STATUS CHANGES [None]
  - OEDEMA PERIPHERAL [None]
  - ATRIAL FIBRILLATION [None]
  - DEHYDRATION [None]
  - DIARRHOEA [None]
  - CARDIAC FAILURE CONGESTIVE [None]
  - CARDIAC VALVE DISEASE [None]
